FAERS Safety Report 16837687 (Version 1)
Quarter: 2019Q3

REPORT INFORMATION
  Report Type: Spontaneous
  Country: DK (occurrence: DK)
  Receive Date: 20190923
  Receipt Date: 20190923
  Transmission Date: 20191005
  Serious: Yes (Other)
  Sender: FDA-Public Use
  Company Number: DK-ABBVIE-19P-044-2933981-00

PATIENT
  Age: 52 Year
  Sex: Male

DRUGS (3)
  1. IBUMETIN [Suspect]
     Active Substance: IBUPROFEN
     Indication: PRODUCT USED FOR UNKNOWN INDICATION
     Dosage: UNK
     Route: 065
  2. PROCREN [Suspect]
     Active Substance: LEUPROLIDE ACETATE
     Indication: HYPERSEXUALITY
     Dosage: UNK
     Route: 065
     Dates: start: 20020919
  3. ANDROCUR [Suspect]
     Active Substance: CYPROTERONE ACETATE
     Indication: HYPERSEXUALITY
     Dosage: UNK
     Route: 065
     Dates: start: 20020919

REACTIONS (2)
  - Melaena [Unknown]
  - Gastrointestinal haemorrhage [Unknown]
